FAERS Safety Report 6293356-9 (Version None)
Quarter: 2009Q3

REPORT INFORMATION
  Report Type: 
  Country: None (occurrence: None)
  Receive Date: 20090731
  Receipt Date: 20090720
  Transmission Date: 20100115
  Serious: Yes (Death, Other)
  Sender: FDA-Public Use
  Company Number: CN-GENENTECH-287701

PATIENT
  Age: 58 Year
  Sex: Female

DRUGS (6)
  1. MABTHERA [Suspect]
     Indication: SJOGREN'S SYNDROME
     Dosage: 375 MG/M2, 1/WEEK
     Route: 065
  2. MYCOPHENOLATE MOFETIL [Suspect]
     Indication: SJOGREN'S SYNDROME
     Dosage: UNK G, UNK
     Route: 065
  3. METHYLPREDNISOLONE [Suspect]
     Indication: SJOGREN'S SYNDROME
     Dosage: 1 G, UNK
     Route: 065
  4. IMMUNE GLOBULIN INTRAVENOUS (HUMAN) [Suspect]
     Indication: SJOGREN'S SYNDROME
     Dosage: 20 G, UNK
     Route: 042
  5. PREDNISONE TAB [Suspect]
     Indication: SJOGREN'S SYNDROME
     Route: 065
  6. CYCLOSPORINE [Suspect]
     Indication: SJOGREN'S SYNDROME
     Route: 065

REACTIONS (3)
  - HERPES ZOSTER [None]
  - LUNG INFECTION [None]
  - OSTEONECROSIS [None]
